FAERS Safety Report 8386384-0 (Version None)
Quarter: 2012Q2

REPORT INFORMATION
  Report Type: 
  Country: None (occurrence: None)
  Receive Date: 20120525
  Receipt Date: 20120515
  Transmission Date: 20120825
  Serious: Yes (Other)
  Sender: FDA-Public Use
  Company Number: BR-EISAI INC-E3810-05533-SPO-BR

PATIENT
  Age: 43 Year
  Sex: Female
  Weight: 104 kg

DRUGS (13)
  1. LEVOTHYROXINE SODIUM [Concomitant]
     Indication: HYPOTHYROIDISM
     Dates: start: 20050101
  2. NEXIUM [Concomitant]
     Dates: start: 20090101
  3. RABEPRAZOLE SODIUM [Suspect]
  4. NEXIUM [Concomitant]
     Indication: HIATUS HERNIA
  5. OMEPRAZOLE [Concomitant]
     Indication: HIATUS HERNIA
  6. RABEPRAZOLE SODIUM [Suspect]
     Indication: HIATUS HERNIA
  7. OMEPRAZOLE [Concomitant]
     Dates: start: 20090101
  8. OMEPRAZOLE [Concomitant]
  9. LANSOPRAZOLE [Concomitant]
  10. NEXIUM [Concomitant]
  11. RABEPRAZOLE SODIUM [Suspect]
     Route: 048
     Dates: start: 20090101
  12. LANSOPRAZOLE [Concomitant]
     Dates: start: 20090101
  13. LANSOPRAZOLE [Concomitant]
     Indication: HIATUS HERNIA

REACTIONS (13)
  - UTERINE LEIOMYOMA [None]
  - HEPATIC STEATOSIS [None]
  - HYPOAESTHESIA [None]
  - MICTURITION FREQUENCY DECREASED [None]
  - URINE CALCIUM INCREASED [None]
  - ABNORMAL FAECES [None]
  - THYROID NEOPLASM [None]
  - OVARIAN CYST [None]
  - ENDOMETRIOSIS [None]
  - UTERINE POLYP [None]
  - FLATULENCE [None]
  - WEIGHT INCREASED [None]
  - LYMPHADENITIS [None]
